FAERS Safety Report 19154978 (Version 2)
Quarter: 2021Q2

REPORT INFORMATION
  Report Type: Spontaneous
  Country: ES (occurrence: ES)
  Receive Date: 20210419
  Receipt Date: 20210421
  Transmission Date: 20210717
  Serious: Yes (Death, Other)
  Sender: FDA-Public Use
  Company Number: ES-TAKEDA-2021TUS016944

PATIENT
  Age: 85 Year
  Sex: Male
  Weight: 94.79 kg

DRUGS (1)
  1. FEIBA NF [Suspect]
     Active Substance: ANTI-INHIBITOR COAGULANT COMPLEX
     Indication: FACTOR VIII DEFICIENCY
     Dosage: 90 INTERNATIONAL UNIT/KILOGRAM, Q12H
     Route: 042
     Dates: start: 20210301

REACTIONS (2)
  - Blood fibrinogen decreased [Unknown]
  - Death [Fatal]

NARRATIVE: CASE EVENT DATE: 20210303
